FAERS Safety Report 8480760-3 (Version None)
Quarter: 2012Q2

REPORT INFORMATION
  Report Type: 
  Country: None (occurrence: None)
  Receive Date: 20120620
  Receipt Date: 20120607
  Transmission Date: 20120825
  Serious: Yes (Other)
  Sender: FDA-Public Use
  Company Number: WAES 1206USA01321

PATIENT
  Age: 68 Year
  Sex: Female

DRUGS (4)
  1. ZOLINZA [Suspect]
     Indication: MYCOSIS FUNGOIDES
     Dosage: 400 MG/DAILY, PO; 300MG/DAILY, PO; 400 MG/DAILY, PO; 300 MG/DAILY, PO
     Route: 048
     Dates: start: 20120113, end: 20120119
  2. ZOLINZA [Suspect]
     Indication: MYCOSIS FUNGOIDES
     Dosage: 400 MG/DAILY, PO; 300MG/DAILY, PO; 400 MG/DAILY, PO; 300 MG/DAILY, PO
     Route: 048
     Dates: start: 20120210, end: 20120223
  3. ZOLINZA [Suspect]
     Indication: MYCOSIS FUNGOIDES
     Dosage: 400 MG/DAILY, PO; 300MG/DAILY, PO; 400 MG/DAILY, PO; 300 MG/DAILY, PO
     Route: 048
     Dates: start: 20120105, end: 20120112
  4. ZOLINZA [Suspect]
     Indication: MYCOSIS FUNGOIDES
     Dosage: 400 MG/DAILY, PO; 300MG/DAILY, PO; 400 MG/DAILY, PO; 300 MG/DAILY, PO
     Route: 048
     Dates: start: 20120120, end: 20120209

REACTIONS (5)
  - ALANINE AMINOTRANSFERASE INCREASED [None]
  - HYPERCREATINAEMIA [None]
  - DYSGEUSIA [None]
  - GAMMA-GLUTAMYLTRANSFERASE INCREASED [None]
  - HEPATIC FUNCTION ABNORMAL [None]
